FAERS Safety Report 15314573 (Version 2)
Quarter: 2018Q4

REPORT INFORMATION
  Report Type: Spontaneous
  Country: US (occurrence: US)
  Receive Date: 20180824
  Receipt Date: 20181101
  Transmission Date: 20190204
  Serious: Yes (Other)
  Sender: FDA-Public Use
  Company Number: US-ELI_LILLY_AND_COMPANY-US201808006982

PATIENT
  Sex: Male

DRUGS (2)
  1. HUMALOG [Suspect]
     Active Substance: INSULIN LISPRO
     Dosage: UNK, UNKNOWN
     Route: 065
  2. HUMALOG [Suspect]
     Active Substance: INSULIN LISPRO
     Indication: PRODUCT USED FOR UNKNOWN INDICATION
     Dosage: UNK, UNKNOWN
     Route: 065

REACTIONS (11)
  - Cardiac disorder [Unknown]
  - Pain in extremity [Unknown]
  - Memory impairment [Not Recovered/Not Resolved]
  - Neuropathy peripheral [Recovered/Resolved]
  - Body temperature increased [Unknown]
  - Hypokinesia [Unknown]
  - Blood glucose decreased [Recovered/Resolved]
  - Pancreatic disorder [Recovering/Resolving]
  - Glycosylated haemoglobin increased [Recovered/Resolved]
  - Peripheral swelling [Unknown]
  - Arterial occlusive disease [Recovering/Resolving]
